FAERS Safety Report 4920355-9 (Version None)
Quarter: 2006Q1

REPORT INFORMATION
  Report Type: 
  Country: None (occurrence: None)
  Receive Date: 20060223
  Receipt Date: 20050317
  Transmission Date: 20060701
  Serious: Yes (Hospitalization, Other)
  Sender: FDA-Public Use
  Company Number: US-MERCK-0503USA03429

PATIENT
  Age: 62 Year
  Sex: Male
  Weight: 102 kg

DRUGS (10)
  1. VIOXX [Suspect]
     Indication: ARTHRITIS
     Route: 048
     Dates: start: 20020101, end: 20030101
  2. IBUPROFEN [Concomitant]
     Route: 065
  3. TRIMOX [Concomitant]
     Route: 065
  4. GLUCOVANCE [Concomitant]
     Route: 065
  5. VIAGRA [Concomitant]
     Route: 065
  6. HYDROCORTISONE ACETATE [Concomitant]
     Route: 065
  7. ANCEF [Concomitant]
     Route: 065
  8. NEOMYCIN [Concomitant]
     Route: 065
  9. CIPRO [Concomitant]
     Route: 065
  10. FOLIC ACID [Concomitant]
     Route: 065

REACTIONS (31)
  - ANAL FISSURE [None]
  - ANXIETY [None]
  - BACK PAIN [None]
  - BLOOD TESTOSTERONE DECREASED [None]
  - CAROTID ARTERY STENOSIS [None]
  - CEREBROVASCULAR ACCIDENT [None]
  - CHEST PAIN [None]
  - DIABETES MELLITUS NON-INSULIN-DEPENDENT [None]
  - DIASTOLIC DYSFUNCTION [None]
  - EAR PAIN [None]
  - ERECTILE DYSFUNCTION [None]
  - GLYCOSYLATED HAEMOGLOBIN INCREASED [None]
  - HAEMATOCHEZIA [None]
  - HAEMORRHOIDS [None]
  - HEMIPARESIS [None]
  - HYPERCHOLESTEROLAEMIA [None]
  - HYPOAESTHESIA [None]
  - LACUNAR INFARCTION [None]
  - LIVER FUNCTION TEST ABNORMAL [None]
  - MITRAL VALVE INCOMPETENCE [None]
  - NOCTURIA [None]
  - OCCULT BLOOD POSITIVE [None]
  - PNEUMONIA [None]
  - PROSTATE CANCER [None]
  - PROSTATIC SPECIFIC ANTIGEN INCREASED [None]
  - TRANSIENT ISCHAEMIC ATTACK [None]
  - TRICUSPID VALVE INCOMPETENCE [None]
  - UMBILICAL HERNIA [None]
  - VENTRICULAR HYPERTROPHY [None]
  - VISION BLURRED [None]
  - WEIGHT DECREASED [None]
